FAERS Safety Report 12263744 (Version 1)
Quarter: 2016Q2

REPORT INFORMATION
  Report Type: Spontaneous
  Country: US (occurrence: US)
  Receive Date: 20160413
  Receipt Date: 20160413
  Transmission Date: 20160815
  Serious: Yes (Other)
  Sender: FDA-Public Use
  Company Number: PHEH2016US008873

PATIENT
  Sex: Female

DRUGS (1)
  1. EXELON PATCH [Suspect]
     Active Substance: RIVASTIGMINE
     Indication: DEMENTIA ALZHEIMER^S TYPE
     Dosage: 13.3 MG, UNK
     Route: 062

REACTIONS (9)
  - Dysphagia [Unknown]
  - Anxiety [Unknown]
  - Seizure [Unknown]
  - Abdominal pain upper [Unknown]
  - Mobility decreased [Unknown]
  - Nasal congestion [Unknown]
  - Dyspnoea [Unknown]
  - Rhinorrhoea [Unknown]
  - Fatigue [Unknown]
